FAERS Safety Report 13592056 (Version 5)
Quarter: 2017Q3

REPORT INFORMATION
  Report Type: Spontaneous
  Country: KR (occurrence: KR)
  Receive Date: 20170529
  Receipt Date: 20170825
  Transmission Date: 20171127
  Serious: Yes (Hospitalization, Other)
  Sender: FDA-Public Use
  Company Number: KR-009507513-1705KOR013600

PATIENT
  Age: 58 Year
  Sex: Male
  Weight: 65.5 kg

DRUGS (21)
  1. EMEND (FOSAPREPITANT DIMEGLUMINE) [Suspect]
     Active Substance: FOSAPREPITANT DIMEGLUMINE
     Dosage: 150 MG, ONCE
     Route: 042
     Dates: start: 20161025, end: 20161025
  2. SPIRIVA RESPIMAT [Concomitant]
     Active Substance: TIOTROPIUM BROMIDE
     Indication: CHRONIC OBSTRUCTIVE PULMONARY DISEASE
     Dosage: 1 CAPSULE, QD; ROUTE OF ADMINISTRATION REPORTED AS ^INHALATION^
     Route: 055
     Dates: start: 20160819
  3. LIPITOR [Concomitant]
     Active Substance: ATORVASTATIN CALCIUM
     Indication: HYPERLIPIDAEMIA
     Dosage: 10 MG, QD
     Route: 048
     Dates: start: 20161004
  4. EMEND (FOSAPREPITANT DIMEGLUMINE) [Suspect]
     Active Substance: FOSAPREPITANT DIMEGLUMINE
     Indication: PROPHYLAXIS OF NAUSEA AND VOMITING
     Dosage: 150 MG, ONCE
     Route: 042
     Dates: start: 20160823, end: 20160823
  5. EMEND (FOSAPREPITANT DIMEGLUMINE) [Suspect]
     Active Substance: FOSAPREPITANT DIMEGLUMINE
     Dosage: 150 MG, ONCE
     Route: 042
     Dates: start: 20161115, end: 20161115
  6. SANCUSO [Concomitant]
     Active Substance: GRANISETRON
     Dosage: 1 EA, QD; STRENGTH: 80.2X66.6MM^2
     Route: 062
     Dates: start: 20170123, end: 20170129
  7. EMEND (FOSAPREPITANT DIMEGLUMINE) [Suspect]
     Active Substance: FOSAPREPITANT DIMEGLUMINE
     Dosage: 150 MG, ONCE
     Route: 042
     Dates: start: 20160913, end: 20160913
  8. EMEND (FOSAPREPITANT DIMEGLUMINE) [Suspect]
     Active Substance: FOSAPREPITANT DIMEGLUMINE
     Dosage: 150 MG, ONCE
     Route: 042
     Dates: start: 20170124, end: 20170124
  9. SANCUSO [Concomitant]
     Active Substance: GRANISETRON
     Dosage: 1 EA, QD; STRENGTH: 80.2X66.6MM^2
     Route: 062
     Dates: start: 20161024, end: 20161030
  10. CENTRUM (MINERALS (UNSPECIFIED) (+) VITAMINS (UNSPECIFIED)) [Concomitant]
     Indication: MINERAL SUPPLEMENTATION
     Dosage: 1 TABLET, QD
     Route: 048
     Dates: start: 20160824
  11. MYPOL [Concomitant]
     Indication: CANCER PAIN
     Dosage: 1 DF, TID
     Route: 048
     Dates: start: 20161205, end: 20170110
  12. CENTRUM (MINERALS (UNSPECIFIED) (+) VITAMINS (UNSPECIFIED)) [Concomitant]
     Indication: VITAMIN SUPPLEMENTATION
  13. PROSCAR [Concomitant]
     Active Substance: FINASTERIDE
     Indication: BENIGN PROSTATIC HYPERPLASIA
     Dosage: 5 MG, QD
     Route: 048
     Dates: start: 20161004
  14. EMEND (FOSAPREPITANT DIMEGLUMINE) [Suspect]
     Active Substance: FOSAPREPITANT DIMEGLUMINE
     Dosage: 150 MG, ONCE
     Route: 042
     Dates: start: 20161005, end: 20161005
  15. SANCUSO [Concomitant]
     Active Substance: GRANISETRON
     Indication: PROPHYLAXIS OF NAUSEA AND VOMITING
     Dosage: 1 EA, QD; STRENGTH:80.2X66.6MM^2
     Route: 062
     Dates: start: 20161004, end: 20161010
  16. SANCUSO [Concomitant]
     Active Substance: GRANISETRON
     Dosage: 1 EA, QD; STRENGTH: 80.2X66.6MM^2
     Route: 062
     Dates: start: 20161114, end: 20161120
  17. SANCUSO [Concomitant]
     Active Substance: GRANISETRON
     Dosage: 1 EA, QD; STRENGTH:80.2X66.6MM^2
     Route: 062
     Dates: start: 20161205, end: 20161211
  18. SANCUSO [Concomitant]
     Active Substance: GRANISETRON
     Dosage: 1 EA, QD; STRENGTH: 80.2X66.6MM^2
     Route: 062
     Dates: start: 20170213, end: 20170219
  19. EMEND (FOSAPREPITANT DIMEGLUMINE) [Suspect]
     Active Substance: FOSAPREPITANT DIMEGLUMINE
     Dosage: 150 MG, ONCE
     Route: 042
     Dates: start: 20161206, end: 20161206
  20. EMEND (FOSAPREPITANT DIMEGLUMINE) [Suspect]
     Active Substance: FOSAPREPITANT DIMEGLUMINE
     Dosage: 150 MG, ONCE
     Route: 042
     Dates: start: 20170214, end: 20170214
  21. MYPOL [Concomitant]
     Indication: PROPHYLAXIS
     Dosage: 1 DF, TID
     Route: 048
     Dates: start: 201608, end: 201609

REACTIONS (2)
  - Pneumonia [Recovered/Resolved]
  - Paraesthesia [Not Recovered/Not Resolved]

NARRATIVE: CASE EVENT DATE: 20161024
